FAERS Safety Report 8223588-1 (Version None)
Quarter: 2012Q1

REPORT INFORMATION
  Report Type: 
  Country: None (occurrence: None)
  Receive Date: 20120321
  Receipt Date: 20120317
  Transmission Date: 20120608
  Serious: No
  Sender: FDA-Public Use
  Company Number: US-PFIZER INC-2012070177

PATIENT
  Sex: Male
  Weight: 159 kg

DRUGS (6)
  1. XALKORI [Suspect]
     Indication: LUNG NEOPLASM MALIGNANT
     Dosage: 250 MG, 2X/DAY
     Dates: start: 20120310
  2. VICODIN [Concomitant]
     Indication: PAIN
     Dosage: 10/325 MG, EVERY 6 HOURS
  3. REVATIO [Concomitant]
     Indication: PULMONARY HYPERTENSION
     Dosage: 20 MG, 3X/DAY
  4. AMBRISENTAN [Concomitant]
     Indication: PULMONARY HYPERTENSION
     Dosage: 5 MG, DAILY
     Dates: start: 20110101
  5. ARIXTRA [Concomitant]
     Indication: PULMONARY EMBOLISM
     Dosage: UNK, DAILY
     Dates: start: 20110101
  6. DEMADEX [Concomitant]
     Indication: FLUID RETENTION
     Dosage: 20 MG, 2X/DAY

REACTIONS (1)
  - NAUSEA [None]
